FAERS Safety Report 7074110-7 (Version None)
Quarter: 2010Q4

REPORT INFORMATION
  Report Type: 
  Country: None (occurrence: None)
  Receive Date: 20101029
  Receipt Date: 20101021
  Transmission Date: 20110411
  Serious: Yes (Other)
  Sender: FDA-Public Use
  Company Number: BR-ROCHE-730006

PATIENT
  Sex: Female
  Weight: 48 kg

DRUGS (2)
  1. BONIVA [Suspect]
     Indication: OSTEOPOROSIS
     Route: 048
     Dates: start: 20100925, end: 20101001
  2. DOLOMITE [Concomitant]
     Indication: OSTEOPENIA
     Dosage: 2 TABS IN MRNING AND 2 TABS AFTER LUNCH
     Dates: start: 20050101, end: 20100101

REACTIONS (18)
  - ABDOMINAL PAIN [None]
  - ASTHENIA [None]
  - BACK PAIN [None]
  - CHEST PAIN [None]
  - DECREASED APPETITE [None]
  - DYSPNOEA [None]
  - GASTROINTESTINAL DISORDER [None]
  - HEADACHE [None]
  - HEPATIC LESION [None]
  - MUSCULOSKELETAL PAIN [None]
  - PAIN [None]
  - PARALYSIS [None]
  - PERIPHERAL PARALYSIS [None]
  - RENAL DISORDER [None]
  - RENAL PAIN [None]
  - RETCHING [None]
  - THIRST [None]
  - URINARY TRACT INFECTION [None]
